FAERS Safety Report 20626183 (Version 1)
Quarter: 2022Q1

REPORT INFORMATION
  Report Type: Spontaneous
  Country: US (occurrence: US)
  Receive Date: 20220323
  Receipt Date: 20220323
  Transmission Date: 20220423
  Serious: Yes (Other)
  Sender: FDA-Public Use
  Company Number: US-CBL-000066

PATIENT
  Age: 27 Year
  Sex: Male

DRUGS (1)
  1. TACROLIMUS [Suspect]
     Active Substance: TACROLIMUS
     Indication: Prophylaxis against transplant rejection
     Route: 065

REACTIONS (6)
  - Hyperammonaemic encephalopathy [Recovered/Resolved]
  - Transplant dysfunction [Unknown]
  - Acute kidney injury [Unknown]
  - Hypotension [Unknown]
  - Renal tubular necrosis [Unknown]
  - Ureaplasma infection [Unknown]
